FAERS Safety Report 9453139 (Version 1)
Quarter: 2013Q3

REPORT INFORMATION
  Report Type: Spontaneous
  Country: JP (occurrence: JP)
  Receive Date: 20130812
  Receipt Date: 20130812
  Transmission Date: 20140515
  Serious: Yes (Death, Other)
  Sender: FDA-Public Use
  Company Number: JP-CUBIST PHARMACEUTICAL, INC.-2012S1000949

PATIENT
  Sex: 0

DRUGS (2)
  1. CUBICIN [Suspect]
     Indication: SOFT TISSUE INFECTION
     Dosage: 4 MG/KG, QD
     Route: 041
     Dates: start: 20121018, end: 20121110
  2. FINIBAX [Concomitant]
     Indication: PRODUCT USED FOR UNKNOWN INDICATION
     Dosage: DAILY DOSAGE UNKNOWN
     Dates: start: 201210, end: 201211

REACTIONS (1)
  - Interstitial lung disease [Not Recovered/Not Resolved]
